FAERS Safety Report 19247422 (Version 1)
Quarter: 2021Q2

REPORT INFORMATION
  Report Type: Spontaneous
  Country: FR (occurrence: FR)
  Receive Date: 20210512
  Receipt Date: 20210512
  Transmission Date: 20210717
  Serious: Yes (Death)
  Sender: FDA-Public Use
  Company Number: FR-TEVA-2021-FR-1909394

PATIENT
  Age: 36 Year
  Sex: Male

DRUGS (4)
  1. DIAZEPAM. [Suspect]
     Active Substance: DIAZEPAM
     Route: 065
     Dates: end: 2020
  2. HEROIN [Suspect]
     Active Substance: DIAMORPHINE
     Route: 065
     Dates: end: 2020
  3. METHADONE [Suspect]
     Active Substance: METHADONE HYDROCHLORIDE
     Indication: DRUG DEPENDENCE
     Route: 065
     Dates: end: 2020
  4. ALCOOL [Suspect]
     Active Substance: ALCOHOL
     Route: 065
     Dates: end: 2020

REACTIONS (2)
  - Depressed level of consciousness [Fatal]
  - Drug abuse [Fatal]
